FAERS Safety Report 5546006-0 (Version None)
Quarter: 2007Q4

REPORT INFORMATION
  Report Type: 
  Country: None (occurrence: None)
  Receive Date: 20071123
  Receipt Date: 20061121
  Transmission Date: 20080405
  Serious: Yes (Hospitalization, Other)
  Sender: FDA-Public Use
  Company Number: 32580

PATIENT
  Age: 48 Year
  Sex: Male
  Weight: 84.8226 kg

DRUGS (12)
  1. LEUCOVORIN CALCIUM [Suspect]
     Indication: BILIARY NEOPLASM
     Dosage: 25MG/M1, Q4WKSXQXD/IV
     Route: 042
     Dates: start: 20061030
  2. OXYCODONE [Concomitant]
  3. FENTANY [Concomitant]
  4. PHENERGAN HCL [Concomitant]
  5. FUROSEMIDE [Concomitant]
  6. ROPINIROLE HCL [Concomitant]
  7. QUETIAPINE [Concomitant]
  8. DIVALPROEX SODIUM [Concomitant]
  9. VENLAFAXINE HCL [Concomitant]
  10. LACTULOSE [Concomitant]
  11. SENNOSIDES [Concomitant]
  12. DOCUSATE [Concomitant]

REACTIONS (2)
  - NAUSEA [None]
  - VOMITING [None]
